FAERS Safety Report 5523189-X (Version None)
Quarter: 2007Q4

REPORT INFORMATION
  Report Type: 
  Country: None (occurrence: None)
  Receive Date: 20071116
  Receipt Date: 20071116
  Transmission Date: 20080405
  Serious: Yes (Life-Threatening, Hospitalization)
  Sender: FDA-Public Use
  Company Number: None

PATIENT
  Age: 44 Year
  Sex: Female
  Weight: 68.9467 kg

DRUGS (1)
  1. CHANTIX [Suspect]
     Indication: SMOKING CESSATION THERAPY
     Dosage: 1MG 2 X DAY PO
     Route: 048
     Dates: start: 20070501, end: 20070916

REACTIONS (8)
  - AMNESIA [None]
  - ANXIETY [None]
  - DELUSION [None]
  - DISSOCIATION [None]
  - HALLUCINATION [None]
  - IMPAIRED WORK ABILITY [None]
  - LOSS OF EMPLOYMENT [None]
  - MENTAL DISORDER [None]
